FAERS Safety Report 8922774 (Version 1)
Quarter: 2012Q4

REPORT INFORMATION
  Report Type: Spontaneous
  Country: JP (occurrence: None)
  Receive Date: 20121109
  Receipt Date: 20121109
  Transmission Date: 20130627
  Serious: Yes (Other)
  Sender: FDA-Public Use
  Company Number: 2012S1000714

PATIENT
  Age: 75 Year
  Sex: Female
  Weight: 68 kg

DRUGS (11)
  1. CUBICIN [Suspect]
     Indication: POST PROCEDURAL INFECTION
     Route: 042
     Dates: start: 20120710, end: 20120717
  2. MOBIC [Concomitant]
  3. LENDORMIN D [Concomitant]
  4. GASTER [Concomitant]
  5. RIZE [Concomitant]
  6. MICARDIS [Concomitant]
  7. AMLODIN OD [Concomitant]
  8. MAGMITT [Concomitant]
  9. CRAVIT [Concomitant]
  10. KLARICID [Concomitant]
  11. VOLTAREN [Concomitant]

REACTIONS (2)
  - Blood creatine phosphokinase increased [None]
  - Pneumonia [None]
